FAERS Safety Report 15749135 (Version 1)
Quarter: 2018Q4

REPORT INFORMATION
  Report Type: Spontaneous
  Country: CZ (occurrence: CZ)
  Receive Date: 20181221
  Receipt Date: 20181221
  Transmission Date: 20190205
  Serious: Yes (Death, Other)
  Sender: FDA-Public Use
  Company Number: PHHY2018CZ147608

PATIENT
  Age: 21 Year
  Sex: Female

DRUGS (5)
  1. CISPLATIN. [Suspect]
     Active Substance: CISPLATIN
     Indication: LUNG NEOPLASM MALIGNANT
     Dosage: 80 MG/M2, (4 CYCLES)
     Route: 042
  2. VINORELBINE [Suspect]
     Active Substance: VINORELBINE\VINORELBINE TARTRATE
     Dosage: UNK
     Route: 048
     Dates: start: 201608
  3. DOCETAXEL. [Suspect]
     Active Substance: DOCETAXEL
     Indication: DISEASE PROGRESSION
     Dosage: 80 MG/M2, QCY
     Route: 042
     Dates: start: 201701
  4. DOCETAXEL. [Suspect]
     Active Substance: DOCETAXEL
     Indication: LUNG NEOPLASM MALIGNANT
  5. VINORELBINE [Suspect]
     Active Substance: VINORELBINE\VINORELBINE TARTRATE
     Indication: LUNG NEOPLASM MALIGNANT
     Dosage: 60 MG/M2, UNK
     Route: 048
     Dates: start: 201603

REACTIONS (4)
  - Infection [Fatal]
  - Death [Fatal]
  - Neutropenia [Fatal]
  - Disease progression [Fatal]

NARRATIVE: CASE EVENT DATE: 2016
